FAERS Safety Report 5281453-6 (Version None)
Quarter: 2007Q1

REPORT INFORMATION
  Report Type: 
  Country: None (occurrence: None)
  Receive Date: 20070323
  Receipt Date: 20070323
  Transmission Date: 20070707
  Serious: Yes (Other)
  Sender: FDA-Public Use
  Company Number: None

PATIENT
  Age: 7 Year
  Sex: Female
  Weight: 23.587 kg

DRUGS (1)
  1. ASMANEX TWISTHALER [Suspect]
     Indication: ASTHMA
     Dosage: 1 PUFF 1 TIME A DAY INHAL
     Route: 055
     Dates: start: 20060815, end: 20070302

REACTIONS (11)
  - ADVERSE DRUG REACTION [None]
  - AMNESIA [None]
  - COGNITIVE DISORDER [None]
  - CONVULSION [None]
  - DISTURBANCE IN ATTENTION [None]
  - FATIGUE [None]
  - LOSS OF CONSCIOUSNESS [None]
  - NERVOUSNESS [None]
  - READING DISORDER [None]
  - RESTLESSNESS [None]
  - SYNCOPE [None]
